FAERS Safety Report 4805627-0 (Version None)
Quarter: 2005Q4

REPORT INFORMATION
  Report Type: 
  Country: None (occurrence: None)
  Receive Date: 20051021
  Receipt Date: 20051018
  Transmission Date: 20060501
  Serious: Yes (Life-Threatening, Hospitalization)
  Sender: FDA-Public Use
  Company Number: DE-BRISTOL-MYERS SQUIBB COMPANY-13151535

PATIENT
  Age: 68 Year
  Sex: Male

DRUGS (5)
  1. PLATINEX [Suspect]
     Indication: METASTATIC GASTRIC CANCER
     Route: 042
     Dates: start: 20050824, end: 20050824
  2. FELODIPINE [Concomitant]
     Dates: start: 20050811
  3. KALINOR [Concomitant]
     Route: 048
     Dates: start: 20050825
  4. MOXONIDINE [Concomitant]
     Dates: start: 20050811
  5. CIPROBAY [Concomitant]
     Dates: start: 20050826

REACTIONS (1)
  - RENAL FAILURE ACUTE [None]
